FAERS Safety Report 13668277 (Version 1)
Quarter: 2017Q2

REPORT INFORMATION
  Report Type: Spontaneous
  Country: US (occurrence: US)
  Receive Date: 20170619
  Receipt Date: 20170619
  Transmission Date: 20170830
  Serious: Yes (Hospitalization)
  Sender: FDA-Public Use
  Company Number: None

PATIENT
  Age: 55 Year
  Sex: Male
  Weight: 100.3 kg

DRUGS (1)
  1. ERBITUX [Suspect]
     Active Substance: CETUXIMAB
     Indication: OROPHARYNGEAL CANCER
     Dosage: ?          OTHER FREQUENCY:Q7D;?
     Route: 042
     Dates: start: 20170515, end: 20170515

REACTIONS (3)
  - Meningitis aseptic [None]
  - Confusional state [None]
  - Neck pain [None]

NARRATIVE: CASE EVENT DATE: 20170515
